FAERS Safety Report 17692483 (Version 1)
Quarter: 2020Q2

REPORT INFORMATION
  Report Type: Spontaneous
  Country: US (occurrence: US)
  Receive Date: 20200420
  Receipt Date: 20200420
  Transmission Date: 20200714
  Serious: Yes (Hospitalization)
  Sender: FDA-Public Use
  Company Number: None

PATIENT
  Age: 83 Year
  Sex: Male
  Weight: 72.12 kg

DRUGS (1)
  1. DURVALUMAB (DURVALUMAB 50MG/ML INJ, SOLN, 10ML) [Suspect]
     Active Substance: DURVALUMAB
     Indication: NON-SMALL CELL LUNG CANCER
     Route: 042
     Dates: start: 20190424, end: 20190508

REACTIONS (11)
  - Pleural effusion [None]
  - Myocarditis [None]
  - Hypothyroidism [None]
  - Chronic obstructive pulmonary disease [None]
  - Troponin increased [None]
  - Atrial fibrillation [None]
  - Dyspnoea [None]
  - Cough [None]
  - Atrioventricular block [None]
  - Wheezing [None]
  - Brain natriuretic peptide increased [None]

NARRATIVE: CASE EVENT DATE: 20190530
